FAERS Safety Report 10063088 (Version 1)
Quarter: 2014Q1

REPORT INFORMATION
  Report Type: Spontaneous
  Country: US (occurrence: None)
  Receive Date: 20140318
  Receipt Date: 20140318
  Transmission Date: 20141002
  Serious: Yes (Other)
  Sender: FDA-Public Use
  Company Number: CC400194256

PATIENT
  Age: 69 Year
  Sex: Female

DRUGS (1)
  1. BALANCED SALT SOLUTION [Suspect]
     Indication: INTRAOCULAR LENS IMPLANT
     Dates: start: 20130911

REACTIONS (1)
  - Toxic anterior segment syndrome [None]
